FAERS Safety Report 15465263 (Version 4)
Quarter: 2019Q4

REPORT INFORMATION
  Report Type: Spontaneous
  Country: US (occurrence: US)
  Receive Date: 20181004
  Receipt Date: 20191022
  Transmission Date: 20200122
  Serious: No
  Sender: FDA-Public Use
  Company Number: US-VIFOR (INTERNATIONAL) INC.-VIT-2018-09718

PATIENT
  Sex: Female

DRUGS (15)
  1. PEPCID [Concomitant]
     Active Substance: FAMOTIDINE
  2. TYLENOL [Concomitant]
     Active Substance: ACETAMINOPHEN
  3. DEMADEX [Concomitant]
     Active Substance: TORSEMIDE
  4. ZOCOR [Concomitant]
     Active Substance: SIMVASTATIN
  5. VELTASSA [Suspect]
     Active Substance: PATIROMER
     Indication: HYPERKALAEMIA
     Route: 048
     Dates: start: 20180913
  6. TRAZODONE HYDROCHLORIDE. [Concomitant]
     Active Substance: TRAZODONE HYDROCHLORIDE
  7. PRESERVISION AREDS 2 [Concomitant]
     Active Substance: MINERALS\VITAMINS
  8. CARDURA [Concomitant]
     Active Substance: DOXAZOSIN MESYLATE
  9. ALDACTONE [Concomitant]
     Active Substance: SPIRONOLACTONE
  10. ULORIC [Concomitant]
     Active Substance: FEBUXOSTAT
  11. CORGARD [Concomitant]
     Active Substance: NADOLOL
  12. BUPROPION HCL [Concomitant]
     Active Substance: BUPROPION HYDROCHLORIDE
  13. VELTASSA [Suspect]
     Active Substance: PATIROMER
     Dates: start: 2019
  14. ACYCLOVIR. [Concomitant]
     Active Substance: ACYCLOVIR
  15. COZAAR [Concomitant]
     Active Substance: LOSARTAN POTASSIUM

REACTIONS (5)
  - Laboratory test abnormal [Recovering/Resolving]
  - Constipation [Unknown]
  - Product dose omission [Not Recovered/Not Resolved]
  - Product physical issue [Not Recovered/Not Resolved]
  - Off label use [Unknown]

NARRATIVE: CASE EVENT DATE: 2018
